FAERS Safety Report 10070904 (Version 2)
Quarter: 2014Q2

REPORT INFORMATION
  Report Type: Spontaneous
  Country: US (occurrence: US)
  Receive Date: 20140410
  Receipt Date: 20140410
  Transmission Date: 20141212
  Serious: Yes (Other)
  Sender: FDA-Public Use
  Company Number: PHHY2014US026737

PATIENT
  Sex: Female

DRUGS (11)
  1. LIORESAL INTRATECAL [Suspect]
     Indication: MUSCLE SPASTICITY
     Dosage: 574.6 UG/DAY
     Route: 037
     Dates: start: 2005
  2. TRAMADOL [Suspect]
     Dosage: UNK UKN, UNK
  3. OMEPRAZOLE [Suspect]
     Dosage: UNK UKN, UNK
  4. NORCO [Suspect]
     Dosage: UNK UKN, UNK
  5. ZANAFLEX [Suspect]
     Dosage: UNK UKN, UNK
  6. CALCIUM +D3 [Suspect]
     Dosage: UNK UKN, UNK
  7. REGLAN [Suspect]
     Dosage: UNK UKN, UNK
  8. METHYLIN [Suspect]
     Dosage: UNK UKN, UNK
  9. CYANOCOBALAMIN [Suspect]
     Dosage: UNK UKN, UNK
  10. COPAXONE [Suspect]
     Dosage: UNK UKN, UNK
  11. CARAFATE [Suspect]
     Dosage: UNK UKN, UNK

REACTIONS (2)
  - Muscle spasms [Unknown]
  - No therapeutic response [Unknown]
